FAERS Safety Report 22321150 (Version 1)
Quarter: 2023Q2

REPORT INFORMATION
  Report Type: Spontaneous
  Country: US (occurrence: US)
  Receive Date: 20230515
  Receipt Date: 20230515
  Transmission Date: 20230721
  Serious: No
  Sender: FDA-Public Use
  Company Number: US-GLAXOSMITHKLINE-USCH2023AMR020605

PATIENT
  Age: 66 Year
  Sex: Male

DRUGS (2)
  1. ADVIL [Suspect]
     Active Substance: IBUPROFEN
     Indication: Myalgia
     Dosage: UNK
     Dates: start: 20230508
  2. ADVIL [Suspect]
     Active Substance: IBUPROFEN
     Indication: Pyrexia

REACTIONS (1)
  - Heart rate abnormal [Unknown]
